FAERS Safety Report 7255899-0 (Version None)
Quarter: 2011Q1

REPORT INFORMATION
  Report Type: 
  Country: None (occurrence: None)
  Receive Date: 20110129
  Receipt Date: 20100510
  Transmission Date: 20110831
  Serious: No
  Sender: FDA-Public Use
  Company Number: US-ABBOTT-10P-163-0643580-00

PATIENT
  Sex: Male
  Weight: 118.95 kg

DRUGS (9)
  1. PLAQUENIL [Concomitant]
     Indication: RHEUMATOID ARTHRITIS
  2. NAPROXEN [Concomitant]
     Indication: RHEUMATOID ARTHRITIS
  3. POTASSIUM [Concomitant]
     Indication: ELECTROLYTE SUBSTITUTION THERAPY
  4. HUMIRA [Suspect]
     Indication: RHEUMATOID ARTHRITIS
     Dates: start: 20100301
  5. UNKNOWN CHOLESTEROL MEDICATION [Concomitant]
     Indication: HYPERLIPIDAEMIA
  6. FUROSEMIDE [Concomitant]
     Indication: FLUID RETENTION
  7. FOLIC ACID [Concomitant]
     Indication: RHEUMATOID ARTHRITIS
  8. PREDNISONE [Concomitant]
     Indication: RHEUMATOID ARTHRITIS
  9. UNKNOWN BLOOD PRESSURE MEDICATION [Concomitant]
     Indication: HYPERTENSION

REACTIONS (3)
  - JOINT SWELLING [None]
  - NAUSEA [None]
  - FEELING ABNORMAL [None]
